FAERS Safety Report 5460264-2 (Version None)
Quarter: 2007Q3

REPORT INFORMATION
  Report Type: 
  Country: None (occurrence: None)
  Receive Date: 20070919
  Receipt Date: 20070716
  Transmission Date: 20080115
  Serious: No
  Sender: FDA-Public Use
  Company Number: US-BRISTOL-MYERS SQUIBB COMPANY-13847603

PATIENT
  Sex: Male

DRUGS (1)
  1. ARIPIPRAZOLE IM [Suspect]
     Indication: ANXIETY
     Route: 030

REACTIONS (1)
  - BLOOD PRESSURE INCREASED [None]
